FAERS Safety Report 16832133 (Version 3)
Quarter: 2019Q4

REPORT INFORMATION
  Report Type: Spontaneous
  Country: JP (occurrence: JP)
  Receive Date: 20190920
  Receipt Date: 20191001
  Transmission Date: 20200122
  Serious: Yes (Other)
  Sender: FDA-Public Use
  Company Number: JP-009507513-1909JPN001303J

PATIENT
  Age: 78 Year
  Sex: Male
  Weight: 47 kg

DRUGS (5)
  1. FENTANYL. [Concomitant]
     Active Substance: FENTANYL
     Indication: MAINTENANCE OF ANAESTHESIA
     Route: 065
  2. REMIFENTANIL HYDROCHLORIDE. [Concomitant]
     Active Substance: REMIFENTANIL HYDROCHLORIDE
     Indication: MAINTENANCE OF ANAESTHESIA
     Route: 065
  3. BRIDION [Suspect]
     Active Substance: SUGAMMADEX
     Indication: NEUROMUSCULAR BLOCKADE REVERSAL
     Dosage: 200 MILLIGRAM
     Route: 042
  4. ESLAX INTRAVENOUS 25MG/2.5ML [Suspect]
     Active Substance: ROCURONIUM BROMIDE
     Indication: NEUROMUSCULAR BLOCKING THERAPY
     Dosage: 253 MILLIGRAM, UNK
     Route: 042
  5. SEVOFLURANE. [Concomitant]
     Active Substance: SEVOFLURANE
     Indication: MAINTENANCE OF ANAESTHESIA
     Route: 065

REACTIONS (1)
  - Hypercapnia [Unknown]
